FAERS Safety Report 4870663-5 (Version None)
Quarter: 2006Q1

REPORT INFORMATION
  Report Type: 
  Country: None (occurrence: None)
  Receive Date: 20060103
  Receipt Date: 20051221
  Transmission Date: 20060701
  Serious: Yes (Hospitalization, Other)
  Sender: FDA-Public Use
  Company Number: US-JNJFOC-20051205257

PATIENT
  Sex: Male
  Weight: 78.93 kg

DRUGS (14)
  1. DURAGESIC-100 [Suspect]
     Route: 062
  2. SOMA [Concomitant]
     Route: 048
  3. SYNTHROID [Concomitant]
     Indication: HYPOTHYROIDISM
     Route: 048
  4. KLONOPIN [Concomitant]
     Indication: ANXIETY
     Route: 048
  5. NORVASC [Concomitant]
     Indication: HYPERTENSION
     Route: 048
  6. LASIX [Concomitant]
     Indication: FLUID RETENTION
     Route: 048
  7. POTASSIUM [Concomitant]
     Route: 048
  8. IMDUR [Concomitant]
     Indication: ANGINA PECTORIS
     Route: 048
  9. CELEXA [Concomitant]
     Indication: ANXIETY
     Route: 048
  10. REGLAN [Concomitant]
     Route: 048
  11. VIOXX [Concomitant]
     Route: 048
  12. PERCOCET [Concomitant]
     Route: 048
  13. PERCOCET [Concomitant]
     Dosage: 5/325 MG, 6 IN 24 HOURS
     Route: 048
  14. ZOFRAN [Concomitant]
     Indication: NAUSEA
     Route: 048

REACTIONS (4)
  - DRUG INEFFECTIVE [None]
  - INAPPROPRIATE SCHEDULE OF DRUG ADMINISTRATION [None]
  - MYOCARDIAL INFARCTION [None]
  - NAUSEA [None]
